FAERS Safety Report 6543036-7 (Version None)
Quarter: 2010Q1

REPORT INFORMATION
  Report Type: 
  Country: None (occurrence: None)
  Receive Date: 20100114
  Receipt Date: 20091224
  Transmission Date: 20100710
  Serious: Yes (Hospitalization)
  Sender: FDA-Public Use
  Company Number: 20090618

PATIENT
  Age: 70 Year
  Sex: Female

DRUGS (1)
  1. VENOFER [Suspect]
     Indication: ANAEMIA MEGALOBLASTIC
     Dosage: INTRAVENOUS
     Route: 042
     Dates: start: 20091220

REACTIONS (8)
  - ERYTHEMA [None]
  - EXTRAVASATION [None]
  - INFUSION SITE PAIN [None]
  - INFUSION SITE SWELLING [None]
  - OEDEMA PERIPHERAL [None]
  - PYREXIA [None]
  - SKIN DISCOLOURATION [None]
  - TREMOR [None]
